FAERS Safety Report 7078680-4 (Version None)
Quarter: 2010Q4

REPORT INFORMATION
  Report Type: 
  Country: None (occurrence: None)
  Receive Date: 20101101
  Receipt Date: 20101101
  Transmission Date: 20110411
  Serious: Yes (Other)
  Sender: FDA-Public Use
  Company Number: None

PATIENT
  Sex: Male
  Weight: 67.586 kg

DRUGS (2)
  1. LEVAQUIN [Suspect]
     Dosage: 500 MG 1 TAB QD PO
     Route: 048
     Dates: start: 20100928, end: 20101007
  2. PREDNISONE [Concomitant]

REACTIONS (1)
  - TENDON RUPTURE [None]
